FAERS Safety Report 10599027 (Version 1)
Quarter: 2014Q4

REPORT INFORMATION
  Report Type: Spontaneous
  Country: GB (occurrence: GB)
  Receive Date: 20141121
  Receipt Date: 20141121
  Transmission Date: 20150529
  Serious: Yes (Disabling)
  Sender: FDA-Public Use
  Company Number: PHHY2014GB149625

PATIENT
  Age: 45 Year
  Sex: Female
  Weight: 78.1 kg

DRUGS (2)
  1. CITALOPRAM [Suspect]
     Active Substance: CITALOPRAM HYDROBROMIDE
     Indication: DEPRESSION
     Dosage: 40 MG, UNK
     Route: 048
     Dates: start: 20110701, end: 20141001
  2. LEVOTHYROXINE [Concomitant]
     Active Substance: LEVOTHYROXINE
     Indication: PRODUCT USED FOR UNKNOWN INDICATION
     Route: 065

REACTIONS (24)
  - Seborrhoea [Recovering/Resolving]
  - Agitation [Recovering/Resolving]
  - Myalgia [Recovering/Resolving]
  - Sleep disorder [Recovering/Resolving]
  - Paraesthesia [Recovering/Resolving]
  - Memory impairment [Recovering/Resolving]
  - Influenza like illness [Recovering/Resolving]
  - Acne [Recovering/Resolving]
  - Lymph node pain [Recovering/Resolving]
  - Dizziness [Recovering/Resolving]
  - Diarrhoea [Recovering/Resolving]
  - Fatigue [Recovering/Resolving]
  - Cold sweat [Recovering/Resolving]
  - Crying [Recovering/Resolving]
  - Oral disorder [Recovering/Resolving]
  - Drug withdrawal syndrome [Recovering/Resolving]
  - Nausea [Recovering/Resolving]
  - Bruxism [Recovering/Resolving]
  - Eye pain [Recovering/Resolving]
  - Disturbance in attention [Recovering/Resolving]
  - Insomnia [Recovering/Resolving]
  - Hot flush [Recovering/Resolving]
  - Depressed mood [Recovering/Resolving]
  - Pruritus [Recovering/Resolving]
